FAERS Safety Report 6233122-3 (Version None)
Quarter: 2009Q2

REPORT INFORMATION
  Report Type: 
  Country: None (occurrence: None)
  Receive Date: 20090616
  Receipt Date: 20090616
  Transmission Date: 20091009
  Serious: Yes (Hospitalization)
  Sender: FDA-Public Use
  Company Number: None

PATIENT
  Sex: Female
  Weight: 80 kg

DRUGS (9)
  1. CISPLATIN [Suspect]
     Dosage: 95 MG
  2. DOXORUBICIN HYDROCHLORIDE [Suspect]
     Dosage: 85 MG
  3. TAXOL [Suspect]
     Dosage: 302 MG
  4. NEULASTA [Suspect]
     Dosage: 6 MG
  5. BENADRYL [Concomitant]
  6. DECADRON [Concomitant]
  7. HEPARIN [Concomitant]
  8. ZOFRAN [Concomitant]
  9. ATIVAN [Concomitant]

REACTIONS (5)
  - DYSPNOEA EXERTIONAL [None]
  - FATIGUE [None]
  - FEBRILE NEUTROPENIA [None]
  - INSOMNIA [None]
  - PAIN IN EXTREMITY [None]
